FAERS Safety Report 9552626 (Version 1)
Quarter: 2013Q3

REPORT INFORMATION
  Report Type: Spontaneous
  Country: US (occurrence: None)
  Receive Date: 20130724
  Receipt Date: 20130724
  Transmission Date: 20140515
  Serious: No
  Sender: FDA-Public Use
  Company Number: PHEH2012US015125

PATIENT
  Age: 63 Year
  Sex: Female

DRUGS (1)
  1. GLEEVEC (IMATINIB) [Suspect]
     Indication: CHRONIC MYELOID LEUKAEMIA
     Route: 048
     Dates: start: 20120319

REACTIONS (7)
  - Chronic myeloid leukaemia [None]
  - Syncope [None]
  - White blood cell count increased [None]
  - Chronic myeloid leukaemia transformation [None]
  - Nasopharyngitis [None]
  - Drug ineffective [None]
  - Malignant neoplasm progression [None]
